FAERS Safety Report 6785781-4 (Version None)
Quarter: 2010Q2

REPORT INFORMATION
  Report Type: 
  Country: None (occurrence: None)
  Receive Date: 20100622
  Receipt Date: 20100622
  Transmission Date: 20101027
  Serious: Yes (Other)
  Sender: FDA-Public Use
  Company Number: None

PATIENT
  Age: 52 Year
  Sex: Male

DRUGS (4)
  1. TOPIRAMATE [Suspect]
     Indication: EPILEPSY
     Dosage: 100MG BID PO
     Route: 048
     Dates: start: 20100611, end: 20100619
  2. CARBATROL [Concomitant]
  3. CELEBREX [Concomitant]
  4. AMINOCAPROIC ACID [Concomitant]

REACTIONS (1)
  - CONVULSION [None]
